FAERS Safety Report 18046047 (Version 3)
Quarter: 2020Q3

REPORT INFORMATION
  Report Type: Report from Study
  Country: CO (occurrence: CO)
  Receive Date: 20200720
  Receipt Date: 20200731
  Transmission Date: 20201103
  Serious: Yes (Other)
  Sender: FDA-Public Use
  Company Number: PHHY2019CO047127

PATIENT
  Age: 36 Year
  Sex: Female
  Weight: 73 kg

DRUGS (6)
  1. TASIGNA [Suspect]
     Active Substance: NILOTINIB
     Indication: CHRONIC MYELOID LEUKAEMIA
     Dosage: 600 MG, QD
     Route: 048
  2. TASIGNA [Interacting]
     Active Substance: NILOTINIB
     Dosage: 400 MG, Q12H
     Route: 048
  3. TASIGNA [Interacting]
     Active Substance: NILOTINIB
     Dosage: 800 MG, Q12H
     Route: 048
  4. TASIGNA [Interacting]
     Active Substance: NILOTINIB
     Dosage: 300 MG, Q12H
     Route: 048
     Dates: start: 20190213
  5. TASIGNA [Interacting]
     Active Substance: NILOTINIB
     Dosage: 800 MG, QD
     Route: 048
     Dates: start: 20190213
  6. TASIGNA [Interacting]
     Active Substance: NILOTINIB
     Dosage: 600 MG, Q12H
     Route: 048

REACTIONS (13)
  - Coronavirus infection [Unknown]
  - Pyrexia [Unknown]
  - Dyspnoea [Unknown]
  - Drug interaction [Unknown]
  - Bone pain [Unknown]
  - Incorrect dose administered [Unknown]
  - Cytogenetic analysis abnormal [Unknown]
  - Oropharyngeal pain [Unknown]
  - Diarrhoea [Unknown]
  - Rash [Recovered/Resolved]
  - Inappropriate schedule of product administration [Unknown]
  - Headache [Unknown]
  - Rash [Unknown]

NARRATIVE: CASE EVENT DATE: 20190213
